FAERS Safety Report 21787654 (Version 1)
Quarter: 2022Q4

REPORT INFORMATION
  Report Type: Spontaneous
  Country: FR (occurrence: FR)
  Receive Date: 20221228
  Receipt Date: 20221228
  Transmission Date: 20230112
  Serious: Yes (Hospitalization)
  Sender: FDA-Public Use
  Company Number: None

PATIENT
  Age: 52 Year
  Sex: Male

DRUGS (3)
  1. AMOXICILLIN [Suspect]
     Active Substance: AMOXICILLIN
     Indication: Infection
     Dosage: 2 G, TID (1-1-1)
     Route: 048
     Dates: start: 20220908, end: 20221001
  2. CIPROFLOXACIN [Suspect]
     Active Substance: CIPROFLOXACIN
     Indication: Infection
     Dosage: 500 MG, TID (1-1-1)
     Route: 048
     Dates: start: 20220908, end: 20221001
  3. AZTREONAM [Suspect]
     Active Substance: AZTREONAM
     Indication: Infection
     Dosage: 1 G (1G/8H)
     Route: 048
     Dates: start: 20221003, end: 20221007

REACTIONS (1)
  - Drug reaction with eosinophilia and systemic symptoms [Recovered/Resolved]

NARRATIVE: CASE EVENT DATE: 20220928
